FAERS Safety Report 4932690-9 (Version None)
Quarter: 2006Q1

REPORT INFORMATION
  Report Type: 
  Country: None (occurrence: None)
  Receive Date: 20060301
  Receipt Date: 20060216
  Transmission Date: 20060701
  Serious: Yes (Other)
  Sender: FDA-Public Use
  Company Number: 2006018185

PATIENT
  Age: 77 Year
  Sex: Male
  Weight: 68 kg

DRUGS (7)
  1. SUTENT [Suspect]
     Indication: GASTROINTESTINAL STROMAL TUMOUR
     Dosage: (DAILY), ORAL
     Route: 048
     Dates: start: 20050519, end: 20060124
  2. OMEPRAZOLE [Concomitant]
  3. LOBIVON        (NEBIVOLOL HYDROCHLORIDE) [Concomitant]
  4. LEVOPRAID          (SULPIRIDE) [Concomitant]
  5. PURSENNID (SENNA LEAF) [Concomitant]
  6. EUTIROX (LEVOTHYROXINE) [Concomitant]
  7. TRAMADOL HCL [Concomitant]

REACTIONS (2)
  - CONFUSIONAL STATE [None]
  - HYPOTHYROIDISM [None]
